FAERS Safety Report 24630725 (Version 1)
Quarter: 2024Q4

REPORT INFORMATION
  Report Type: Spontaneous
  Country: US (occurrence: US)
  Receive Date: 20241118
  Receipt Date: 20241118
  Transmission Date: 20250115
  Serious: No
  Sender: TAKEDA
  Company Number: US-TAKEDA-2024TUS114654

PATIENT
  Sex: Female
  Weight: 138 kg

DRUGS (3)
  1. ENTYVIO [Suspect]
     Active Substance: VEDOLIZUMAB
     Indication: Crohn^s disease
     Dosage: 300 MILLIGRAM, Q4WEEKS
  2. AMITRIPTYLINE [Concomitant]
     Active Substance: AMITRIPTYLINE
     Indication: Nervousness
     Dosage: UNK
  3. BROMADINE-DM [Concomitant]
     Indication: Gastrointestinal disorder
     Dosage: UNK

REACTIONS (2)
  - Off label use [Unknown]
  - Arthralgia [Unknown]
